FAERS Safety Report 9831796 (Version 2)
Quarter: 2014Q1

REPORT INFORMATION
  Report Type: Spontaneous
  Country: US (occurrence: US)
  Receive Date: 20140121
  Receipt Date: 20140325
  Transmission Date: 20141002
  Serious: Yes (Other)
  Sender: FDA-Public Use
  Company Number: US-PERRIGO-14US000324

PATIENT
  Age: 54 Year
  Sex: Female

DRUGS (4)
  1. NITETIME FREE LIQGL 977 [Suspect]
     Indication: NASOPHARYNGITIS
     Dosage: 3 PACKETS IN 24 HOURS
     Route: 048
     Dates: start: 20131231, end: 20131231
  2. NITETIME FREE LIQGL 977 [Suspect]
     Dosage: 1 PACKET, SINGLE
     Route: 048
     Dates: start: 20140109, end: 20140109
  3. ANTIEPILEPTICS [Concomitant]
     Indication: CONVULSION
     Dosage: UNK, UNK
     Route: 065
     Dates: start: 1968
  4. ANTIHYPERTENSIVES [Concomitant]
     Indication: HYPERTENSION
     Dosage: UNK, UNK
     Route: 065
     Dates: start: 2011

REACTIONS (2)
  - Convulsion [Recovered/Resolved]
  - Foot fracture [Unknown]
